FAERS Safety Report 6084627-X (Version None)
Quarter: 2009Q1

REPORT INFORMATION
  Report Type: 
  Country: None (occurrence: None)
  Receive Date: 20090219
  Receipt Date: 20090217
  Transmission Date: 20090719
  Serious: Yes (Death, Other)
  Sender: FDA-Public Use
  Company Number: CA-B.I. PHARMACEUTICALS,INC./RIDGEFIELD-2009-CN-00100CN

PATIENT
  Sex: Female

DRUGS (4)
  1. CATAPRES [Suspect]
     Indication: PAIN MANAGEMENT
     Dates: start: 20081001
  2. MORPHINE [Suspect]
     Indication: PAIN MANAGEMENT
     Route: 037
     Dates: start: 20080901
  3. NOZINAN [Concomitant]
     Indication: PAIN MANAGEMENT
     Route: 042
     Dates: start: 20090211
  4. MORPHINE [Concomitant]
     Route: 058
     Dates: start: 20090201

REACTIONS (2)
  - PANCOAST'S TUMOUR [None]
  - RESPIRATORY DEPRESSION [None]
